FAERS Safety Report 24921818 (Version 1)
Quarter: 2025Q1

REPORT INFORMATION
  Report Type: Spontaneous
  Country: CN (occurrence: CN)
  Receive Date: 20250204
  Receipt Date: 20250204
  Transmission Date: 20250409
  Serious: Yes (Death, Life-Threatening, Hospitalization)
  Sender: ACCORD
  Company Number: CN-MLMSERVICE-20250116-PI361312-00232-3

PATIENT
  Age: 95 Month
  Sex: Male

DRUGS (2)
  1. MYCOPHENOLATE MOFETIL [Suspect]
     Active Substance: MYCOPHENOLATE MOFETIL
     Indication: Immunosuppressant drug therapy
     Dosage: MYCOPHENOLATE MOFETIL DISPERSIBLE TABLETS: 250 MG, 1/12 H
  2. TACROLIMUS [Suspect]
     Active Substance: TACROLIMUS
     Indication: Immunosuppressant drug therapy
     Dosage: TACROLIMUS CAPSULES: 2.5 MG, 1/12 H

REACTIONS (7)
  - Diffuse large B-cell lymphoma [Fatal]
  - Epstein-Barr virus associated lymphoproliferative disorder [Fatal]
  - Pneumonia viral [Fatal]
  - Septic shock [Fatal]
  - Respiratory failure [Fatal]
  - Intestinal perforation [Fatal]
  - Ascites [Fatal]
